FAERS Safety Report 4406058-8 (Version None)
Quarter: 2004Q3

REPORT INFORMATION
  Report Type: 
  Country: None (occurrence: None)
  Receive Date: 20040723
  Receipt Date: 20040406
  Transmission Date: 20050211
  Serious: No
  Sender: FDA-Public Use
  Company Number: US-GLAXOSMITHKLINE-A0505988A

PATIENT
  Age: 60 Year
  Sex: Female

DRUGS (4)
  1. AVANDIA [Suspect]
     Dosage: 2MG PER DAY
     Route: 048
  2. LOTENSIN [Concomitant]
  3. INDERAL [Concomitant]
  4. HUMULIN 70/30 [Concomitant]

REACTIONS (2)
  - DYSPNOEA [None]
  - OEDEMA [None]
